FAERS Safety Report 20893689 (Version 1)
Quarter: 2022Q2

REPORT INFORMATION
  Report Type: Spontaneous
  Country: US (occurrence: None)
  Receive Date: 20220527
  Receipt Date: 20220527
  Transmission Date: 20220720
  Serious: Yes (Hospitalization)
  Sender: FDA-Public Use
  Company Number: None

PATIENT
  Age: 37 Year
  Sex: Female

DRUGS (2)
  1. GANIRELIX ACETATE [Suspect]
     Active Substance: GANIRELIX ACETATE
     Indication: Infertility female
     Dosage: 250MCG DAILY SUBQ?
     Route: 058
     Dates: start: 20220511
  2. ENDOMETRIN [Suspect]
     Active Substance: PROGESTERONE
     Indication: Infertility female
     Dosage: 100MG TID VAGINALLY?
     Route: 067
     Dates: start: 20220422

REACTIONS (7)
  - Ovarian hyperstimulation syndrome [None]
  - Urticaria [None]
  - Lactose intolerance [None]
  - Angioedema [None]
  - Lip swelling [None]
  - Abdominal discomfort [None]
  - Therapy cessation [None]

NARRATIVE: CASE EVENT DATE: 20220501
